FAERS Safety Report 12966890 (Version 2)
Quarter: 2016Q4

REPORT INFORMATION
  Report Type: Spontaneous
  Country: US (occurrence: US)
  Receive Date: 20161123
  Receipt Date: 20161229
  Transmission Date: 20170207
  Serious: Yes (Other)
  Sender: FDA-Public Use
  Company Number: US-BRISTOL-MYERS SQUIBB COMPANY-BMS-2016-097364

PATIENT
  Sex: Female

DRUGS (1)
  1. SPRYCEL [Suspect]
     Active Substance: DASATINIB
     Indication: PRODUCT USED FOR UNKNOWN INDICATION
     Dosage: UNK
     Route: 065
     Dates: start: 20140723

REACTIONS (9)
  - White blood cell count decreased [Unknown]
  - Drug ineffective [Unknown]
  - Toxicity to various agents [Unknown]
  - Adverse event [Unknown]
  - Malaise [Unknown]
  - Mass [Unknown]
  - Rash [Unknown]
  - Lymphadenopathy [Unknown]
  - Pyrexia [Unknown]
